FAERS Safety Report 7488165-9 (Version None)
Quarter: 2011Q2

REPORT INFORMATION
  Report Type: 
  Country: None (occurrence: None)
  Receive Date: 20110518
  Receipt Date: 20110510
  Transmission Date: 20111010
  Serious: Yes (Hospitalization)
  Sender: FDA-Public Use
  Company Number: US-EISAI INC-E7389-01081-CLI-US

PATIENT
  Sex: Male
  Weight: 68 kg

DRUGS (4)
  1. EPIRUBICIN HYDROCHLORIDE [Suspect]
     Indication: NON-SMALL CELL LUNG CANCER
     Route: 041
     Dates: start: 20101116, end: 20101221
  2. CARAFATE [Concomitant]
     Indication: ANAEMIA
  3. PREDNISONE [Concomitant]
     Indication: ANAEMIA
  4. ERLOTINIB HYDROCHLORIDE [Concomitant]
     Indication: NON-SMALL CELL LUNG CANCER
     Route: 048
     Dates: start: 20101130

REACTIONS (2)
  - RENAL FAILURE ACUTE [None]
  - FAILURE TO THRIVE [None]
